FAERS Safety Report 10203591 (Version 1)
Quarter: 2014Q2

REPORT INFORMATION
  Report Type: Spontaneous
  Country: FR (occurrence: None)
  Receive Date: 20140523
  Receipt Date: 20140523
  Transmission Date: 20141212
  Serious: Yes (Hospitalization)
  Sender: FDA-Public Use
  Company Number: AUR-APL-2014-05975

PATIENT
  Age: 81 Year
  Sex: Female

DRUGS (8)
  1. SIMVASTATIN (SIMVASTATIN) [Suspect]
     Indication: PRODUCT USED FOR UNKNOWN INDICATION
     Route: 048
     Dates: end: 20140120
  2. OGASTORO [Suspect]
     Route: 048
     Dates: start: 20131224, end: 20140123
  3. PREVISCAN (PENTOXIFYLLINE) [Suspect]
     Indication: PRODUCT USED FOR UNKNOWN INDICATION
     Route: 048
     Dates: start: 20131120, end: 20140120
  4. ALDACTONE [Concomitant]
  5. CARDEGIC [Concomitant]
  6. DAFALGAN [Concomitant]
  7. UVEDOSE [Concomitant]
  8. CORENITEC [Concomitant]

REACTIONS (8)
  - Hepatitis cholestatic [None]
  - Bradycardia [None]
  - International normalised ratio increased [None]
  - Overdose [None]
  - Depression [None]
  - Ventricular extrasystoles [None]
  - Atrioventricular block first degree [None]
  - Electrocardiogram QT prolonged [None]
